FAERS Safety Report 26005582 (Version 1)
Quarter: 2025Q4

REPORT INFORMATION
  Report Type: Spontaneous
  Country: GB (occurrence: GB)
  Receive Date: 20251106
  Receipt Date: 20251106
  Transmission Date: 20260117
  Serious: Yes (Other)
  Sender: MSN LABORATORIES PRIVATE LIMITED
  Company Number: GB-MHRA-TPP20295314C9972668YC1761209657785

PATIENT

DRUGS (14)
  1. ROSUVASTATIN [Suspect]
     Active Substance: ROSUVASTATIN
     Indication: Ill-defined disorder
     Route: 065
     Dates: start: 20240613
  2. FOLIC ACID [Concomitant]
     Active Substance: FOLIC ACID
     Indication: Ill-defined disorder
     Dosage: TAKE ONE DAILY
     Route: 065
     Dates: start: 20250729, end: 20251021
  3. TAMSULOSIN HYDROCHLORIDE [Concomitant]
     Active Substance: TAMSULOSIN HYDROCHLORIDE
     Indication: Ill-defined disorder
     Dosage: TAKE ONE DAILY
     Route: 065
     Dates: start: 20230315
  4. ALLOPURINOL [Concomitant]
     Active Substance: ALLOPURINOL
     Indication: Ill-defined disorder
     Dosage: TAKE TWO DAILY
     Route: 065
     Dates: start: 20240613
  5. BETAMETHASONE VALERATE [Concomitant]
     Active Substance: BETAMETHASONE VALERATE
     Indication: Ill-defined disorder
     Dosage: APPLY TWICE A DAY
     Route: 065
     Dates: start: 20240613
  6. EDOXABAN [Concomitant]
     Active Substance: EDOXABAN
     Indication: Ill-defined disorder
     Dosage: TAKE ONE DAILY
     Route: 065
     Dates: start: 20240613
  7. GAVISCON ADVANCED [Concomitant]
     Indication: Ill-defined disorder
     Dosage: 5ML - 10ML 4 TIMES/DAY
     Route: 065
     Dates: start: 20240613
  8. PROPRANOLOL [Concomitant]
     Active Substance: PROPRANOLOL HYDROCHLORIDE
     Indication: Ill-defined disorder
     Dosage: TAKE ONE EVERY 18 HRS AS DIRECTED
     Route: 065
     Dates: start: 20240613
  9. QVAR [Concomitant]
     Active Substance: BECLOMETHASONE DIPROPIONATE
     Indication: Ill-defined disorder
     Dosage: TWO PUFFS TWICE A DAY
     Route: 065
     Dates: start: 20240613
  10. ALBUTEROL [Concomitant]
     Active Substance: ALBUTEROL
     Indication: Ill-defined disorder
     Dosage: TWO PUFFS AS REQUIRED
     Route: 065
     Dates: start: 20240613
  11. LANSOPRAZOLE [Concomitant]
     Active Substance: LANSOPRAZOLE
     Indication: Ill-defined disorder
     Dosage: TAKE ONE CAPSULE EACH DAY WITH HALF A 15MG ORO-...
     Route: 065
     Dates: start: 20250716
  12. EZETIMIBE [Concomitant]
     Active Substance: EZETIMIBE
     Indication: Ill-defined disorder
     Dosage: TAKE ONE DAILY
     Route: 065
     Dates: start: 20251023
  13. FLEXITOL [DICLOFENAC SODIUM] [Concomitant]
     Indication: Ill-defined disorder
     Dosage: APPLY AS REQUIRED
     Route: 065
     Dates: start: 20240613, end: 20250807
  14. EPIMAX [ISOPROPYL MYRISTATE;PARAFFIN, LIQUID] [Concomitant]
     Indication: Ill-defined disorder
     Dosage: USE DAILY AFER SHOWERING/BATHING AS EMOLLIENT A...
     Route: 065
     Dates: start: 20250430

REACTIONS (1)
  - Pain in jaw [Recovered/Resolved]
